FAERS Safety Report 15744468 (Version 1)
Quarter: 2018Q4

REPORT INFORMATION
  Report Type: Report from Study
  Country: CA (occurrence: CA)
  Receive Date: 20181220
  Receipt Date: 20181220
  Transmission Date: 20190205
  Serious: Yes (Other)
  Sender: FDA-Public Use
  Company Number: CA-AMGEN-CANSL2018180167

PATIENT
  Age: 69 Year
  Sex: Female

DRUGS (1)
  1. REPATHA [Suspect]
     Active Substance: EVOLOCUMAB
     Indication: TYPE IIA HYPERLIPIDAEMIA
     Dosage: 420 MG, UNK
     Route: 065
     Dates: start: 20180706

REACTIONS (10)
  - Dry eye [Unknown]
  - Hypoaesthesia [Unknown]
  - Fear [Unknown]
  - Heart rate increased [Unknown]
  - Eye pain [Unknown]
  - Feeling hot [Unknown]
  - Blood pressure fluctuation [Unknown]
  - Eye pruritus [Unknown]
  - Visual impairment [Unknown]
  - Angina pectoris [Unknown]
